FAERS Safety Report 25522998 (Version 1)
Quarter: 2025Q3

REPORT INFORMATION
  Report Type: Spontaneous
  Country: GB (occurrence: GB)
  Receive Date: 20250707
  Receipt Date: 20250707
  Transmission Date: 20251021
  Serious: Yes (Life-Threatening, Disabling, Other)
  Sender: AUROBINDO
  Company Number: GB-MHRA-MED-202506232125334530-MYRSV

PATIENT
  Age: 43 Year
  Sex: Female

DRUGS (2)
  1. CITALOPRAM [Suspect]
     Active Substance: CITALOPRAM
     Indication: Anxiety
     Route: 065
  2. PROPRANOLOL [Concomitant]
     Active Substance: PROPRANOLOL HYDROCHLORIDE
     Indication: Adverse drug reaction
     Route: 065

REACTIONS (2)
  - Major depression [Recovering/Resolving]
  - Suicidal ideation [Recovering/Resolving]
